FAERS Safety Report 15239494 (Version 1)
Quarter: 2018Q3

REPORT INFORMATION
  Report Type: Report from Study
  Country: US (occurrence: US)
  Receive Date: 20180803
  Receipt Date: 20180803
  Transmission Date: 20181010
  Serious: Yes (Hospitalization)
  Sender: FDA-Public Use
  Company Number: US-AMGEN-USACT2018104344

PATIENT
  Age: 52 Year
  Sex: Female

DRUGS (6)
  1. CARFILZOMIB [Suspect]
     Active Substance: CARFILZOMIB
     Dosage: 56 MG/M2, PER CHEMO REGIM
     Route: 042
  2. DEXAMETHASONE. [Suspect]
     Active Substance: DEXAMETHASONE
     Indication: PLASMA CELL MYELOMA
     Dosage: 20 MG, PER CHEMO REGIM
     Route: 065
     Dates: start: 20180613
  3. LENALIDOMIDE [Suspect]
     Active Substance: LENALIDOMIDE
     Indication: PLASMA CELL MYELOMA
     Dosage: 25 MG, PER CHEMO REGIM
     Route: 065
     Dates: start: 20180613
  4. CARFILZOMIB [Suspect]
     Active Substance: CARFILZOMIB
     Indication: PLASMA CELL MYELOMA
     Dosage: 20 MG/M2, PER CHEMO REGIM
     Route: 042
     Dates: start: 20180613
  5. BENADRYL [Concomitant]
     Active Substance: DIPHENHYDRAMINE HYDROCHLORIDE
     Dosage: 25 MG, AS NECESSARY
     Dates: start: 20180626
  6. FLUOROMETHOLONE. [Concomitant]
     Active Substance: FLUOROMETHOLONE
     Dosage: UNK UNK, BID
     Dates: start: 20180626

REACTIONS (3)
  - Periorbital oedema [Not Recovered/Not Resolved]
  - Intraocular pressure increased [Not Recovered/Not Resolved]
  - Conjunctival oedema [Not Recovered/Not Resolved]

NARRATIVE: CASE EVENT DATE: 20180707
